FAERS Safety Report 5211741-0 (Version None)
Quarter: 2007Q1

REPORT INFORMATION
  Report Type: 
  Country: None (occurrence: None)
  Receive Date: 20070116
  Receipt Date: 20061227
  Transmission Date: 20070707
  Serious: Yes (Hospitalization)
  Sender: FDA-Public Use
  Company Number: A-JP2006-13676

PATIENT
  Age: 48 Year
  Sex: Female
  Weight: 39 kg

DRUGS (10)
  1. TRACLEER [Suspect]
     Indication: PULMONARY HYPERTENSION
     Dosage: SEE IMAGE
     Route: 048
     Dates: start: 20061017, end: 20061113
  2. TRACLEER [Suspect]
     Indication: PULMONARY HYPERTENSION
     Dosage: SEE IMAGE
     Route: 048
     Dates: start: 20061114, end: 20061120
  3. TRACLEER [Suspect]
     Indication: PULMONARY HYPERTENSION
     Dosage: SEE IMAGE
     Route: 048
     Dates: start: 20061208, end: 20061211
  4. BERAPROST SODIUM (BERAPROST SODIUM) [Concomitant]
  5. WARFARIN SODIUM [Concomitant]
  6. FUROSEMIDE (FUROSEMIDE SODIUM) [Concomitant]
  7. SPIRONOLACTONE [Concomitant]
  8. PREDNISOLONE ACETATE [Concomitant]
  9. FAMOTIDINE [Concomitant]
  10. OXYGEN (OXYGEN) [Concomitant]

REACTIONS (3)
  - ALANINE AMINOTRANSFERASE INCREASED [None]
  - ASPARTATE AMINOTRANSFERASE INCREASED [None]
  - GAMMA-GLUTAMYLTRANSFERASE INCREASED [None]
